FAERS Safety Report 21434133 (Version 2)
Quarter: 2022Q4

REPORT INFORMATION
  Report Type: Spontaneous
  Country: ID (occurrence: ID)
  Receive Date: 20221010
  Receipt Date: 20221018
  Transmission Date: 20230112
  Serious: Yes (Hospitalization, Other)
  Sender: FDA-Public Use
  Company Number: ID-MLMSERVICE-20220928-3825658-1

PATIENT
  Age: 51 Year
  Sex: Male

DRUGS (3)
  1. CLOPIDOGREL BISULFATE [Suspect]
     Active Substance: CLOPIDOGREL BISULFATE
     Indication: Acute coronary syndrome
     Dosage: 300 MG (LOADING DOSE)
  2. ASPIRIN [Suspect]
     Active Substance: ASPIRIN
     Indication: Acute coronary syndrome
     Dosage: 300 MG (LOADING DOSE)
  3. ENOXAPARIN SODIUM [Suspect]
     Active Substance: ENOXAPARIN SODIUM
     Indication: Acute coronary syndrome
     Dosage: 60 MG, BID
     Route: 042

REACTIONS (9)
  - Compartment syndrome [Recovering/Resolving]
  - Ecchymosis [Recovering/Resolving]
  - Peripheral swelling [Recovering/Resolving]
  - Condition aggravated [Recovering/Resolving]
  - Blister [Recovering/Resolving]
  - Pallor [Recovering/Resolving]
  - Paraesthesia [Recovering/Resolving]
  - Haemorrhage [Unknown]
  - Incorrect dose administered [Unknown]
